FAERS Safety Report 9172414 (Version 2)
Quarter: 2013Q4

REPORT INFORMATION
  Report Type: Spontaneous
  Country: US (occurrence: US)
  Receive Date: 20120911
  Receipt Date: 20131101
  Transmission Date: 20140711
  Serious: Yes (Disabling)
  Sender: FDA-Public Use
  Company Number: US-009507513-1208USA012470

PATIENT
  Sex: Male
  Weight: 94.33 kg

DRUGS (11)
  1. ISENTRESS [Suspect]
     Dosage: 400 MG, BID
  2. NORVIR [Suspect]
     Indication: HIV INFECTION
     Dosage: UNK
     Dates: end: 2007
  3. INTELENCE [Suspect]
     Indication: HIV INFECTION
     Dosage: 200 MG, BID
  4. GABAPENTIN [Suspect]
     Indication: NEUROPATHY PERIPHERAL
  5. IBUPROFEN [Concomitant]
  6. FLOMAX (TAMSULOSIN HYDROCHLORIDE) [Suspect]
     Indication: PROSTATOMEGALY
     Dosage: 0.4 MG, QD
  7. VICODIN [Suspect]
     Indication: PAIN IN EXTREMITY
  8. VICODIN [Suspect]
     Indication: BACK PAIN
  9. TRAMADOL HYDROCHLORIDE [Suspect]
     Indication: MIGRAINE
     Dosage: 50 MG, UNK
  10. [THERAPY UNSPECIFIED] [Suspect]
  11. ALCOHOL [Suspect]

REACTIONS (12)
  - Urinary tract infection [Recovered/Resolved]
  - Prostatomegaly [Recovered/Resolved]
  - Sleep disorder therapy [Unknown]
  - Haemorrhage [Recovered/Resolved]
  - Erectile dysfunction [Unknown]
  - Lip disorder [Unknown]
  - Prostatic disorder [Unknown]
  - Drug hypersensitivity [Unknown]
  - Abdominal pain [Recovered/Resolved]
  - Drug ineffective [Unknown]
  - Neuropathy peripheral [Unknown]
  - Drug hypersensitivity [Unknown]
